FAERS Safety Report 4639304-6 (Version None)
Quarter: 2005Q2

REPORT INFORMATION
  Report Type: 
  Country: None (occurrence: None)
  Receive Date: 20050418
  Receipt Date: 20050406
  Transmission Date: 20051028
  Serious: Yes (Other)
  Sender: FDA-Public Use
  Company Number: HQWYE802207APR05

PATIENT
  Age: 44 Year
  Sex: Female

DRUGS (2)
  1. ADVIL [Suspect]
     Indication: PAIN IN EXTREMITY
     Dates: start: 20050124, end: 20050124
  2. BETASERON [Suspect]
     Indication: MULTIPLE SCLEROSIS
     Dosage: 8 MIU, EVERY OTHER DAY, SUBCUTANEOUS
     Route: 058
     Dates: start: 20020204

REACTIONS (1)
  - DRUG HYPERSENSITIVITY [None]
